FAERS Safety Report 9194000 (Version 1)
Quarter: 2013Q1

REPORT INFORMATION
  Report Type: Spontaneous
  Country: US (occurrence: US)
  Receive Date: 20130327
  Receipt Date: 20130327
  Transmission Date: 20140127
  Serious: No
  Sender: FDA-Public Use
  Company Number: US-TEVA-394304USA

PATIENT
  Sex: Female
  Weight: 93.07 kg

DRUGS (5)
  1. PROAIR HFA [Suspect]
     Indication: DYSPNOEA
     Dosage: 1-2 PUFFS Q 4-6 HRS.
     Route: 055
     Dates: start: 201211
  2. TEGRETOL ER [Concomitant]
     Route: 048
  3. PROZAC [Concomitant]
     Route: 048
  4. NEXIUM [Concomitant]
     Route: 048
  5. ATENOLOL/CHLORTHALIDONE [Concomitant]
     Dosage: 50/25 MG
     Route: 048

REACTIONS (2)
  - Dyspnoea [Not Recovered/Not Resolved]
  - Drug effect decreased [Not Recovered/Not Resolved]
